FAERS Safety Report 8586414-7 (Version None)
Quarter: 2012Q3

REPORT INFORMATION
  Report Type: 
  Country: None (occurrence: None)
  Receive Date: 20120810
  Receipt Date: 20120801
  Transmission Date: 20120928
  Serious: No
  Sender: FDA-Public Use
  Company Number: US-ASTRAZENECA-2012SE05893

PATIENT
  Age: 35 Year
  Sex: Female

DRUGS (1)
  1. SEROQUEL [Suspect]
     Indication: ANXIETY
     Route: 048

REACTIONS (6)
  - FEELING ABNORMAL [None]
  - AGGRESSION [None]
  - SOMNOLENCE [None]
  - OFF LABEL USE [None]
  - DRUG DOSE OMISSION [None]
  - HOMICIDAL IDEATION [None]
